FAERS Safety Report 4265770-4 (Version None)
Quarter: 2004Q1

REPORT INFORMATION
  Report Type: 
  Country: None (occurrence: None)
  Receive Date: 20040106
  Receipt Date: 20031224
  Transmission Date: 20041129
  Serious: Yes (Other)
  Sender: FDA-Public Use
  Company Number: US-JNJFOC-20031100231

PATIENT
  Age: 34 Year
  Sex: Female
  Weight: 53.7512 kg

DRUGS (10)
  1. REMICADE [Suspect]
     Indication: CROHN'S DISEASE
     Dosage: 300 MG, 1 IN 1 TOTAL, INTRAVENOUS
     Route: 042
     Dates: start: 20030326
  2. REMICADE [Suspect]
     Indication: CROHN'S DISEASE
     Dosage: 300 MG, 1 IN 1 TOTAL, INTRAVENOUS
     Route: 042
     Dates: start: 20030625
  3. REMICADE [Suspect]
     Indication: CROHN'S DISEASE
     Dosage: 300 MG, 1 IN 1 TOTAL, INTRAVENOUS
     Route: 042
     Dates: start: 20030922
  4. IRON (IRON) [Concomitant]
  5. B 12 INJECTIONS (CYANOCOBALAMIN) INJECTION [Concomitant]
  6. IMURAN [Concomitant]
  7. MICALCIN (CALCITONIN, SALMON) SPRAY [Concomitant]
  8. DELTAZINE (ARTICAINE HYDROCHLORIDE) [Concomitant]
  9. BENADRYL [Concomitant]
  10. SOLU-CORTEF [Concomitant]

REACTIONS (10)
  - ARTHRALGIA [None]
  - ASTHENIA [None]
  - FATIGUE [None]
  - FUNGAL INFECTION [None]
  - HOT FLUSH [None]
  - INSOMNIA [None]
  - LIMB INJURY [None]
  - MYALGIA [None]
  - PAIN IN EXTREMITY [None]
  - SERUM SICKNESS [None]
